FAERS Safety Report 6451707-6 (Version None)
Quarter: 2009Q4

REPORT INFORMATION
  Report Type: 
  Country: None (occurrence: None)
  Receive Date: 20091123
  Receipt Date: 20091111
  Transmission Date: 20100525
  Serious: Yes (Hospitalization)
  Sender: FDA-Public Use
  Company Number: GR-ELI_LILLY_AND_COMPANY-GR200911002982

PATIENT
  Age: 65 Year
  Sex: Female
  Weight: 90 kg

DRUGS (6)
  1. HUMULIN 70/30 [Suspect]
     Indication: DIABETES MELLITUS
     Dosage: 38 U, DAILY (1/D)
     Route: 058
     Dates: start: 20060802
  2. CALCIUM CHANNEL BLOCKERS [Concomitant]
     Dosage: UNK, UNKNOWN
     Route: 065
  3. DIURETICS [Concomitant]
     Dosage: UNK, UNKNOWN
     Route: 065
  4. ANGIOTENSIN II [Concomitant]
     Dosage: UNK, UNKNOWN
     Route: 065
  5. TICLOPIDINE HCL [Concomitant]
     Dosage: UNK, UNKNOWN
     Route: 065
  6. CLOPIDOGREL [Concomitant]
     Dosage: UNK, UNKNOWN
     Route: 065

REACTIONS (1)
  - ABDOMINAL PAIN [None]
